FAERS Safety Report 18902265 (Version 2)
Quarter: 2021Q1

REPORT INFORMATION
  Report Type: Spontaneous
  Country: CN (occurrence: CN)
  Receive Date: 20210216
  Receipt Date: 20210303
  Transmission Date: 20210420
  Serious: Yes (Other)
  Sender: FDA-Public Use
  Company Number: CN-ASTRAZENECA-2021A054002

PATIENT
  Age: 85 Year
  Sex: Female
  Weight: 50 kg

DRUGS (4)
  1. IRESSA [Suspect]
     Active Substance: GEFITINIB
     Route: 048
  2. TAGRISSO [Suspect]
     Active Substance: OSIMERTINIB
     Indication: LUNG NEOPLASM MALIGNANT
     Dosage: MORE THAN ONE AND A HALF MONTHS, LESS THAN TWO MONTHS
     Route: 048
  3. TAGRISSO [Suspect]
     Active Substance: OSIMERTINIB
     Indication: LUNG NEOPLASM MALIGNANT
     Dosage: CONTINUES TO USE IT AGAIN
     Route: 048
  4. TAGRISSO [Suspect]
     Active Substance: OSIMERTINIB
     Indication: LUNG NEOPLASM MALIGNANT
     Dosage: 80 MG DAILY, THE REPORTER STATED PATIENT TOOK TAGRISSO EVERY OTHER DAY.
     Route: 048
     Dates: start: 20201125

REACTIONS (7)
  - Umbilical hernia [Unknown]
  - Platelet count decreased [Not Recovered/Not Resolved]
  - Decreased appetite [Not Recovered/Not Resolved]
  - Epistaxis [Recovering/Resolving]
  - Drug ineffective [Unknown]
  - Peripheral swelling [Not Recovered/Not Resolved]
  - Nausea [Not Recovered/Not Resolved]
